FAERS Safety Report 9054980 (Version 1)
Quarter: 2013Q1

REPORT INFORMATION
  Report Type: Spontaneous
  Country: US (occurrence: US)
  Receive Date: 20130208
  Receipt Date: 20130208
  Transmission Date: 20140127
  Serious: Yes (Other)
  Sender: FDA-Public Use
  Company Number: US-ROCHE-1071558

PATIENT
  Sex: Female
  Weight: 47.67 kg

DRUGS (2)
  1. ACCUTANE [Suspect]
     Indication: ACNE
     Route: 065
     Dates: start: 199911, end: 200011
  2. IBUPROFEN [Concomitant]

REACTIONS (6)
  - Colitis ulcerative [Unknown]
  - Crohn^s disease [Unknown]
  - Inflammatory bowel disease [Unknown]
  - Colitis [Unknown]
  - Anxiety [Unknown]
  - Irritable bowel syndrome [Unknown]
